FAERS Safety Report 21493406 (Version 1)
Quarter: 2022Q4

REPORT INFORMATION
  Report Type: Spontaneous
  Country: US (occurrence: US)
  Receive Date: 20221021
  Receipt Date: 20221021
  Transmission Date: 20230112
  Serious: Yes (Hospitalization, Other)
  Sender: FDA-Public Use
  Company Number: US-INSUD PHARMA-2210US04277

PATIENT

DRUGS (1)
  1. TESTOSTERONE [Suspect]
     Active Substance: TESTOSTERONE
     Indication: Hypogonadism
     Dosage: CHRONIC REPLACEMENT THERAPY
     Route: 065

REACTIONS (7)
  - Arteriosclerosis coronary artery [Recovered/Resolved with Sequelae]
  - Coronary artery disease [Recovered/Resolved with Sequelae]
  - Coronary artery occlusion [Recovered/Resolved with Sequelae]
  - Chest pain [Recovered/Resolved]
  - Hypertension [Recovered/Resolved]
  - Tachycardia [Recovered/Resolved]
  - Ejection fraction decreased [Recovered/Resolved with Sequelae]
